FAERS Safety Report 12531637 (Version 1)
Quarter: 2016Q3

REPORT INFORMATION
  Report Type: Spontaneous
  Country: TR (occurrence: TR)
  Receive Date: 20160706
  Receipt Date: 20160706
  Transmission Date: 20161109
  Serious: Yes (Other)
  Sender: FDA-Public Use
  Company Number: PHHY2016TR090663

PATIENT
  Age: 9 Month
  Sex: Female
  Weight: 8.8 kg

DRUGS (9)
  1. LINEZOLID. [Suspect]
     Active Substance: LINEZOLID
     Indication: DISSEMINATED TUBERCULOSIS
     Dosage: 10 MG/KG, BID
     Route: 065
  2. AMIKACIN [Concomitant]
     Active Substance: AMIKACIN
     Dosage: UNK UNK, QOD
     Route: 065
  3. CYCLOSERINE. [Concomitant]
     Active Substance: CYCLOSERINE
     Indication: DISSEMINATED TUBERCULOSIS
     Dosage: 15 MG/KG, QD
     Route: 065
  4. AMIKACIN [Concomitant]
     Active Substance: AMIKACIN
     Indication: DISSEMINATED TUBERCULOSIS
     Dosage: 15 MG/KG, QD
     Route: 065
  5. PYRAZINAMIDE. [Concomitant]
     Active Substance: PYRAZINAMIDE
     Indication: DISSEMINATED TUBERCULOSIS
     Dosage: 30 MG/KG, QD
     Route: 065
  6. ISONIAZID. [Concomitant]
     Active Substance: ISONIAZID
     Indication: DISSEMINATED TUBERCULOSIS
     Dosage: 10 MG/KG, QD
     Route: 065
  7. ISONIAZID. [Concomitant]
     Active Substance: ISONIAZID
     Dosage: 15 MG/KG, QD
     Route: 065
  8. CLOFAZIMINE [Suspect]
     Active Substance: CLOFAZIMINE
     Indication: DISSEMINATED TUBERCULOSIS
     Dosage: 5 MG/KG, QD
     Route: 065
  9. LEVOFLOXACIN. [Concomitant]
     Active Substance: LEVOFLOXACIN
     Indication: DISSEMINATED TUBERCULOSIS
     Dosage: 10 MG/KG, BID
     Route: 065

REACTIONS (2)
  - Bone marrow failure [Unknown]
  - Skin discolouration [Unknown]
